FAERS Safety Report 4611543-X (Version None)
Quarter: 2005Q1

REPORT INFORMATION
  Report Type: 
  Country: None (occurrence: None)
  Receive Date: 20050317
  Receipt Date: 20050307
  Transmission Date: 20050727
  Serious: Yes (Other)
  Sender: FDA-Public Use
  Company Number: GB-ROCHE-397654

PATIENT
  Age: 19 Year
  Sex: Female
  Weight: 96 kg

DRUGS (3)
  1. ORLISTAT [Suspect]
     Indication: OBESITY
     Route: 048
     Dates: start: 20050211, end: 20050222
  2. FOLIC ACID [Concomitant]
     Dates: start: 20050216
  3. LEVONORGESTREL AND ETHINYL ESTRADIOL [Concomitant]
     Dates: end: 20050211

REACTIONS (2)
  - ABORTION SPONTANEOUS [None]
  - DRUG EXPOSURE DURING PREGNANCY [None]
